FAERS Safety Report 8153039-7 (Version None)
Quarter: 2012Q1

REPORT INFORMATION
  Report Type: 
  Country: None (occurrence: None)
  Receive Date: 20120221
  Receipt Date: 20120215
  Transmission Date: 20120608
  Serious: Yes (Life-Threatening, Hospitalization, Other)
  Sender: FDA-Public Use
  Company Number: CA-JNJFOC-20120103831

PATIENT
  Sex: Female
  Weight: 86 kg

DRUGS (4)
  1. INVEGA SUSTENNA [Suspect]
     Indication: PRODUCT USED FOR UNKNOWN INDICATION
     Route: 030
     Dates: start: 20110816, end: 20120110
  2. SYNTHROID [Concomitant]
     Indication: HYPOTENSION
     Route: 065
  3. PROPRANOLOL [Concomitant]
     Indication: AKATHISIA
     Route: 065
     Dates: start: 20110413, end: 20120101
  4. COLACE [Concomitant]
     Indication: CONSTIPATION
     Route: 065

REACTIONS (2)
  - PERICARDIAL EFFUSION [None]
  - PULMONARY ARTERIAL HYPERTENSION [None]
